FAERS Safety Report 13490061 (Version 1)
Quarter: 2017Q2

REPORT INFORMATION
  Report Type: Spontaneous
  Country: US (occurrence: US)
  Receive Date: 20170427
  Receipt Date: 20170427
  Transmission Date: 20170830
  Serious: No
  Sender: FDA-Public Use
  Company Number: None

PATIENT
  Age: 70 Year
  Sex: Male
  Weight: 71.73 kg

DRUGS (6)
  1. MULTI VITAMINS [Concomitant]
     Active Substance: VITAMINS
  2. VICDON [Concomitant]
  3. ALBULTOL [Concomitant]
  4. MEGESTROL ACETATE 200MG ORAL [Suspect]
     Active Substance: MEGESTROL ACETATE
     Indication: DECREASED APPETITE
     Dosage: 2 TEASPOONS TWICE A DAY TWICE A DAY MOUTH
     Route: 048
     Dates: start: 20170201
  5. NORVAC [Concomitant]
     Active Substance: AMLODIPINE BESYLATE
  6. METFORMIN [Concomitant]
     Active Substance: METFORMIN HYDROCHLORIDE

REACTIONS (6)
  - Aggression [None]
  - Violence-related symptom [None]
  - Panic attack [None]
  - Anger [None]
  - Irritability [None]
  - Personality change [None]

NARRATIVE: CASE EVENT DATE: 20170225
